FAERS Safety Report 4405902-8 (Version None)
Quarter: 2004Q3

REPORT INFORMATION
  Report Type: 
  Country: None (occurrence: None)
  Receive Date: 20040716
  Receipt Date: 20040706
  Transmission Date: 20050211
  Serious: Yes (Death)
  Sender: FDA-Public Use
  Company Number: DE-JNJFOC-20040502454

PATIENT
  Age: 37 Year
  Sex: Female
  Weight: 62 kg

DRUGS (3)
  1. TOPAMAX [Suspect]
     Indication: EPILEPSY
     Dosage: SEE IMAGE ORAL
     Route: 048
     Dates: start: 20031001
  2. TRILEPTAL [Suspect]
     Indication: EPILEPSY
     Dosage: 450 MG, 3 IN 1 DAY, ORAL
     Route: 048
     Dates: start: 20021001
  3. LEVOTHYROXINE SODIUM [Concomitant]

REACTIONS (3)
  - BLOOD SODIUM DECREASED [None]
  - POST PROCEDURAL COMPLICATION [None]
  - SUDDEN DEATH [None]
